FAERS Safety Report 10865398 (Version 1)
Quarter: 2015Q1

REPORT INFORMATION
  Report Type: Spontaneous
  Country: US (occurrence: US)
  Receive Date: 20150224
  Receipt Date: 20150224
  Transmission Date: 20150721
  Serious: Yes (Hospitalization, Other)
  Sender: FDA-Public Use
  Company Number: US-DRREDDYS-USA/USA/15/0046197

PATIENT
  Age: 65 Year
  Sex: Female

DRUGS (3)
  1. TACROLIMUS. [Suspect]
     Active Substance: TACROLIMUS
     Indication: ALPHA-1 ANTI-TRYPSIN DEFICIENCY
     Route: 065
  2. MYCOPHENOLIC ACID. [Suspect]
     Active Substance: MYCOPHENOLIC ACID
     Indication: ALPHA-1 ANTI-TRYPSIN DEFICIENCY
     Route: 065
  3. PREDNISONE. [Suspect]
     Active Substance: PREDNISONE
     Indication: ALPHA-1 ANTI-TRYPSIN DEFICIENCY
     Route: 065

REACTIONS (6)
  - Clostridium difficile infection [Unknown]
  - Diverticulitis [Unknown]
  - Dehydration [Unknown]
  - Weight decreased [Unknown]
  - Failure to thrive [Unknown]
  - Obliterative bronchiolitis [Unknown]
